FAERS Safety Report 17262676 (Version 2)
Quarter: 2020Q1

REPORT INFORMATION
  Report Type: Spontaneous
  Country: AR (occurrence: AR)
  Receive Date: 20200113
  Receipt Date: 20200118
  Transmission Date: 20200409
  Serious: Yes (Death, Other)
  Sender: FDA-Public Use
  Company Number: NVSC2020AR005423

PATIENT
  Age: 79 Year
  Sex: Male

DRUGS (3)
  1. SINTROM [Concomitant]
     Active Substance: ACENOCOUMAROL
     Indication: PRODUCT USED FOR UNKNOWN INDICATION
     Dosage: UNK ,STARTED MANY YEARS AGO
     Route: 065
  2. EXFORGE [Suspect]
     Active Substance: AMLODIPINE BESYLATE\VALSARTAN
     Indication: BLOOD PRESSURE ABNORMAL
     Dosage: (AMLODIPINE: 10 OT, VALSARTAN: 320 OT, HYDROCHLOROTHIAZIDE: 25 OT, STARTED SEVERAL YEARS AGO, STOPPE
     Route: 065
  3. FLUTAMIDE. [Concomitant]
     Active Substance: FLUTAMIDE
     Indication: PROSTATE CANCER
     Dosage: UNK, STARTED 7 YEARS AGO
     Route: 065

REACTIONS (7)
  - Blood pressure fluctuation [Unknown]
  - Neoplasm malignant [Unknown]
  - Renal failure [Fatal]
  - Pain [Unknown]
  - Swelling [Unknown]
  - Urinary retention [Unknown]
  - Urinary tract infection [Unknown]

NARRATIVE: CASE EVENT DATE: 20191219
